FAERS Safety Report 15567389 (Version 1)
Quarter: 2018Q4

REPORT INFORMATION
  Report Type: Spontaneous
  Country: US (occurrence: US)
  Receive Date: 20181030
  Receipt Date: 20181030
  Transmission Date: 20190205
  Serious: Yes (Death, Hospitalization, Other)
  Sender: FDA-Public Use
  Company Number: US-ELI_LILLY_AND_COMPANY-US201810013169

PATIENT
  Age: 20 Year
  Sex: Female
  Weight: 81.8 kg

DRUGS (8)
  1. HEPARIN [Concomitant]
     Active Substance: HEPARIN SODIUM
     Indication: ANTICOAGULANT THERAPY
  2. ORENITRAM [Suspect]
     Active Substance: TREPROSTINIL
     Indication: PULMONARY HYPERTENSION
     Dosage: 6.75 MG, QID
     Route: 065
     Dates: start: 20170315
  3. NITRIC OXIDE. [Concomitant]
     Active Substance: NITRIC OXIDE
  4. AMBRISENTAN [Suspect]
     Active Substance: AMBRISENTAN
     Dosage: 10 MG, DAILY
     Route: 065
     Dates: start: 20180912
  5. ADCIRCA [Suspect]
     Active Substance: TADALAFIL
     Indication: PULMONARY ARTERIAL HYPERTENSION
     Dosage: UNK, UNKNOWN
     Route: 065
  6. OXYGEN. [Concomitant]
     Active Substance: OXYGEN
  7. AMBRISENTAN [Suspect]
     Active Substance: AMBRISENTAN
     Indication: PULMONARY ARTERIAL HYPERTENSION
     Dosage: 10 MG, DAILY
     Route: 065
     Dates: start: 20141017, end: 20180815
  8. REMODULIN [Concomitant]
     Active Substance: TREPROSTINIL

REACTIONS (10)
  - Joint swelling [Unknown]
  - Headache [Unknown]
  - Diarrhoea [Unknown]
  - Hot flush [Unknown]
  - Pulmonary embolism [Fatal]
  - Peripheral swelling [Unknown]
  - Nasal congestion [Unknown]
  - Flushing [Unknown]
  - Right ventricular failure [Fatal]
  - Road traffic accident [Unknown]

NARRATIVE: CASE EVENT DATE: 20180929
